FAERS Safety Report 25860301 (Version 1)
Quarter: 2025Q3

REPORT INFORMATION
  Report Type: Spontaneous
  Country: US (occurrence: None)
  Receive Date: 20250928
  Receipt Date: 20250928
  Transmission Date: 20251021
  Serious: Yes (Other)
  Sender: FDA-CTU
  Company Number: None

PATIENT
  Age: 35 Year
  Sex: Female
  Weight: 59.4 kg

DRUGS (3)
  1. METRONIDAZOLE [Suspect]
     Active Substance: METRONIDAZOLE
     Indication: Bacterial infection
     Dosage: 14 TABLET(S) TEICE A DAY ORAL ?
     Route: 048
  2. METRONIDAZOLE [Suspect]
     Active Substance: METRONIDAZOLE
     Indication: Viral infection
  3. YAZ [Suspect]
     Active Substance: DROSPIRENONE\ETHINYL ESTRADIOL

REACTIONS (12)
  - Weight increased [None]
  - Menstrual disorder [None]
  - Hypomenorrhoea [None]
  - Heavy menstrual bleeding [None]
  - Parosmia [None]
  - Ocular hyperaemia [None]
  - Headache [None]
  - Dry skin [None]
  - Pruritus [None]
  - Urinary tract disorder [None]
  - Urinary retention [None]
  - Eye discharge [None]

NARRATIVE: CASE EVENT DATE: 20250927
